FAERS Safety Report 6944507-1 (Version None)
Quarter: 2010Q3

REPORT INFORMATION
  Report Type: 
  Country: None (occurrence: None)
  Receive Date: 20100827
  Receipt Date: 20100816
  Transmission Date: 20110219
  Serious: Yes (Other)
  Sender: FDA-Public Use
  Company Number: US-PFIZER INC-2009310726

PATIENT
  Sex: Female
  Weight: 86.168 kg

DRUGS (1)
  1. CLEOCIN [Suspect]
     Indication: URINARY TRACT INFECTION
     Dosage: UNK
     Route: 042
     Dates: start: 20080101, end: 20080701

REACTIONS (2)
  - HEMIPLEGIA [None]
  - PAIN [None]
